FAERS Safety Report 4735182-5 (Version None)
Quarter: 2005Q3

REPORT INFORMATION
  Report Type: 
  Country: None (occurrence: None)
  Receive Date: 20050804
  Receipt Date: 20050726
  Transmission Date: 20060218
  Serious: Yes (Congenital Anomaly)
  Sender: FDA-Public Use
  Company Number: 2005-01-2215

PATIENT
  Age: 32 Year
  Sex: Female
  Weight: 102.9665 kg

DRUGS (2)
  1. REBETOL [Suspect]
     Indication: HEPATITIS C
     Dosage: 1200 MG ORAL
     Route: 048
     Dates: start: 20030827, end: 20040220
  2. PEG-INTRON [Suspect]
     Indication: HEPATITIS C
     Dosage: 150 MCG QWK SUBCUANEOUS
     Route: 058
     Dates: start: 20030827, end: 20040220

REACTIONS (5)
  - CONGENITAL ANOMALY [None]
  - DRUG EXPOSURE DURING PREGNANCY [None]
  - KIDNEY MALFORMATION [None]
  - PREGNANCY [None]
  - SINGLE FUNCTIONAL KIDNEY [None]
